FAERS Safety Report 23554116 (Version 3)
Quarter: 2024Q2

REPORT INFORMATION
  Report Type: Spontaneous
  Country: US (occurrence: US)
  Receive Date: 20240222
  Receipt Date: 20240410
  Transmission Date: 20240716
  Serious: Yes (Hospitalization, Other)
  Sender: FDA-Public Use
  Company Number: US-JNJFOC-20240251615

PATIENT
  Age: 86 Year
  Sex: Male
  Weight: 49.9 kg

DRUGS (33)
  1. OPSUMIT [Suspect]
     Active Substance: MACITENTAN
     Indication: Product used for unknown indication
     Route: 048
     Dates: end: 2024
  2. TREPROSTINIL [Suspect]
     Active Substance: TREPROSTINIL
     Indication: Pulmonary arterial hypertension
     Dosage: TREPROSTINIL INHALATION POWDER?112 UG, QID [64 UG+48 UG], INHALATION
     Route: 055
     Dates: start: 202401
  3. TREPROSTINIL [Suspect]
     Active Substance: TREPROSTINIL
     Route: 055
  4. TREPROSTINIL [Suspect]
     Active Substance: TREPROSTINIL
     Route: 055
     Dates: start: 20240109
  5. TREPROSTINIL [Suspect]
     Active Substance: TREPROSTINIL
     Route: 055
  6. TYVASO DPI [Suspect]
     Active Substance: TREPROSTINIL
     Indication: Pulmonary arterial hypertension
     Dosage: TREPROSTINIL INHALATION POWDER
     Route: 065
  7. TYVASO DPI [Suspect]
     Active Substance: TREPROSTINIL
     Route: 055
     Dates: start: 20240109
  8. TYVASO DPI [Suspect]
     Active Substance: TREPROSTINIL
     Route: 055
     Dates: start: 20230626
  9. JARDIANCE [Concomitant]
     Active Substance: EMPAGLIFLOZIN
  10. OMEPRAZOLE MAGNESIUM [Concomitant]
     Active Substance: OMEPRAZOLE MAGNESIUM
  11. FINASTERIDE [Concomitant]
     Active Substance: FINASTERIDE
  12. ALBUTEROL SULFATE [Concomitant]
     Active Substance: ALBUTEROL SULFATE
  13. CIALIS [Concomitant]
     Active Substance: TADALAFIL
  14. LISINOPRIL [Concomitant]
     Active Substance: LISINOPRIL
  15. NEPAFENAC;PREDNISOLONE [Concomitant]
  16. MYCOPHENOLATE MOFETIL [Concomitant]
     Active Substance: MYCOPHENOLATE MOFETIL
  17. VITAMIN D3 [Concomitant]
     Active Substance: CHOLECALCIFEROL
  18. PROBIOTIC ACIDOPHILUS [LACTOBACILLUS ACIDOPHILUS] [Concomitant]
  19. ASCORBIC ACID [Concomitant]
     Active Substance: ASCORBIC ACID
  20. CYANOCOBALAMIN [Concomitant]
     Active Substance: CYANOCOBALAMIN
  21. ERGOCALCIFEROL [Concomitant]
     Active Substance: ERGOCALCIFEROL
  22. NICOTINAMIDE [Concomitant]
     Active Substance: NIACINAMIDE
  23. PYRIDOXINE HYDROCHLORIDE [Concomitant]
     Active Substance: PYRIDOXINE HYDROCHLORIDE
  24. RETINOL [Concomitant]
     Active Substance: RETINOL
  25. RIBOFLAVIN [Concomitant]
     Active Substance: RIBOFLAVIN
  26. THIAMINE MONONITRATE [Concomitant]
     Active Substance: THIAMINE MONONITRATE
  27. OXYGEN [Concomitant]
     Active Substance: OXYGEN
  28. CALCIUM CARBONATE [Concomitant]
     Active Substance: CALCIUM CARBONATE
  29. FUROSEMIDE [Concomitant]
     Active Substance: FUROSEMIDE
  30. POTASSIUM CHLORIDE [Concomitant]
     Active Substance: POTASSIUM CHLORIDE
  31. NIFEDIPINE [Concomitant]
     Active Substance: NIFEDIPINE
  32. SIMVASTATIN [Concomitant]
     Active Substance: SIMVASTATIN
  33. ONE A DAY [ASCORBIC ACID;CYANOCOBALAMIN;ERGOCALCIFEROL;NICOTINAMIDE;PY [Concomitant]

REACTIONS (3)
  - Hypotension [Unknown]
  - Ophthalmic herpes zoster [Unknown]
  - Left ventricular dysfunction [Unknown]

NARRATIVE: CASE EVENT DATE: 20240120
